FAERS Safety Report 16943457 (Version 3)
Quarter: 2019Q4

REPORT INFORMATION
  Report Type: Spontaneous
  Country: JP (occurrence: JP)
  Receive Date: 20191022
  Receipt Date: 20191219
  Transmission Date: 20200122
  Serious: Yes (Other)
  Sender: FDA-Public Use
  Company Number: JP-BRISTOL-MYERS SQUIBB COMPANY-BMS-2019-100048

PATIENT
  Age: 77 Year
  Sex: Male

DRUGS (2)
  1. OPDIVO [Suspect]
     Active Substance: NIVOLUMAB
     Indication: METASTATIC RENAL CELL CARCINOMA
     Dosage: 240 MILLIGRAM/KILOGRAM, Q2WK
     Route: 041
     Dates: start: 20190930
  2. YERVOY [Suspect]
     Active Substance: IPILIMUMAB
     Indication: METASTATIC RENAL CELL CARCINOMA
     Dosage: 1 MICROGRAM/KILOGRAM, Q2WK
     Route: 041
     Dates: start: 20190930

REACTIONS (2)
  - Malignant neoplasm progression [Unknown]
  - Disseminated intravascular coagulation [Not Recovered/Not Resolved]
